FAERS Safety Report 13626822 (Version 1)
Quarter: 2017Q2

REPORT INFORMATION
  Report Type: Report from Study
  Country: US (occurrence: US)
  Receive Date: 20170607
  Receipt Date: 20170607
  Transmission Date: 20170830
  Serious: Yes (Other)
  Sender: FDA-Public Use
  Company Number: US-ASTELLAS-2015US025879

PATIENT
  Age: 91 Year
  Sex: Male

DRUGS (2)
  1. ERLOTINIB [Suspect]
     Active Substance: ERLOTINIB
     Indication: NON-SMALL CELL LUNG CANCER
  2. ERLOTINIB [Suspect]
     Active Substance: ERLOTINIB
     Indication: LUNG NEOPLASM MALIGNANT
     Route: 048
     Dates: start: 20150416, end: 20150706

REACTIONS (13)
  - Constipation [Not Recovered/Not Resolved]
  - Asthenia [Recovering/Resolving]
  - Abdominal pain upper [Recovered/Resolved]
  - Abdominal distension [Not Recovered/Not Resolved]
  - Abasia [Recovering/Resolving]
  - Nephrolithiasis [Recovering/Resolving]
  - Decreased appetite [Not Recovered/Not Resolved]
  - Decreased appetite [Recovering/Resolving]
  - Posture abnormal [Unknown]
  - Weight decreased [Recovering/Resolving]
  - Aphasia [Unknown]
  - Dysphagia [Unknown]
  - Fatigue [Recovering/Resolving]

NARRATIVE: CASE EVENT DATE: 20150416
